FAERS Safety Report 4819427-9 (Version None)
Quarter: 2005Q4

REPORT INFORMATION
  Report Type: 
  Country: None (occurrence: None)
  Receive Date: 20051103
  Receipt Date: 20051024
  Transmission Date: 20060501
  Serious: Yes (Other)
  Sender: FDA-Public Use
  Company Number: JP-JNJFOC-20051006004

PATIENT
  Sex: Female

DRUGS (3)
  1. RISPERDAL [Suspect]
     Route: 048
  2. RISPERDAL [Suspect]
     Route: 048
  3. RISPERDAL [Suspect]
     Indication: DRUG USE FOR UNKNOWN INDICATION
     Dosage: (TAKEN ^FOR SEVERAL YEARS^)
     Route: 048

REACTIONS (4)
  - DRY EYE [None]
  - HAEMORRHAGE SUBCUTANEOUS [None]
  - LEUKOPENIA [None]
  - THROMBOCYTOPENIA [None]
